FAERS Safety Report 10146677 (Version 1)
Quarter: 2014Q2

REPORT INFORMATION
  Report Type: Spontaneous
  Country: US (occurrence: None)
  Receive Date: 20140430
  Receipt Date: 20140430
  Transmission Date: 20141212
  Serious: Yes (Hospitalization)
  Sender: FDA-Public Use
  Company Number: None

PATIENT
  Age: 63 Year
  Sex: Male

DRUGS (3)
  1. INSULIN [Suspect]
     Indication: HYPERGLYCAEMIA
     Route: 058
     Dates: end: 20140228
  2. ALPRAZOLAM [Concomitant]
  3. MORPHINE [Concomitant]

REACTIONS (2)
  - Blood glucose decreased [None]
  - Blood glucose increased [None]
